FAERS Safety Report 21829541 (Version 2)
Quarter: 2023Q1

REPORT INFORMATION
  Report Type: Spontaneous
  Country: CA (occurrence: CA)
  Receive Date: 20230106
  Receipt Date: 20230124
  Transmission Date: 20230417
  Serious: Yes (Other)
  Sender: FDA-Public Use
  Company Number: CA-Accord-294292

PATIENT
  Age: 69 Year
  Sex: Male

DRUGS (19)
  1. FLUOROURACIL [Suspect]
     Active Substance: FLUOROURACIL
     Indication: Acinar cell carcinoma of pancreas
     Dosage: 4200 MG/M^2 EVERY 2-WK
  2. IRINOTECAN [Suspect]
     Active Substance: IRINOTECAN
     Indication: Panniculitis
     Dosage: 120 MG/M^2 EVERY 2-WK
  3. OXALIPLATIN [Suspect]
     Active Substance: OXALIPLATIN
     Indication: Panniculitis
     Dosage: 65 MG/M^2 EVERY 2-WK
  4. LEUCOVORIN [Suspect]
     Active Substance: LEUCOVORIN
     Indication: Panniculitis
     Dosage: 400 MG/M^2 EVERY 2-WK
  5. PREDNISOLONE [Concomitant]
     Active Substance: PREDNISOLONE
     Indication: Arthritis
     Dosage: TAPERING DOSE
  6. DEXAMETHASONE [Concomitant]
     Active Substance: DEXAMETHASONE
  7. NAPROXEN [Concomitant]
     Active Substance: NAPROXEN
     Indication: Gout
  8. IRINOTECAN [Suspect]
     Active Substance: IRINOTECAN
     Indication: Acinar cell carcinoma of pancreas
     Dosage: 120 MG/M^2 EVERY 2-WK
  9. IRINOTECAN [Suspect]
     Active Substance: IRINOTECAN
     Indication: Metastases to liver
     Dosage: 120 MG/M^2 EVERY 2-WK
  10. LEUCOVORIN [Suspect]
     Active Substance: LEUCOVORIN
     Indication: Metastases to liver
     Dosage: 400 MG/M^2 EVERY 2-WK
  11. LEUCOVORIN [Suspect]
     Active Substance: LEUCOVORIN
     Indication: Acinar cell carcinoma of pancreas
     Dosage: 400 MG/M^2 EVERY 2-WK
  12. FLUOROURACIL [Suspect]
     Active Substance: FLUOROURACIL
     Indication: Metastases to liver
     Dosage: 4200 MG/M^2 EVERY 2-WK
  13. FLUOROURACIL [Suspect]
     Active Substance: FLUOROURACIL
     Indication: Panniculitis
     Dosage: 4200 MG/M^2 EVERY 2-WK
  14. OXALIPLATIN [Suspect]
     Active Substance: OXALIPLATIN
     Indication: Acinar cell carcinoma of pancreas
     Dosage: 65 MG/M^2 EVERY 2-WK
  15. OXALIPLATIN [Suspect]
     Active Substance: OXALIPLATIN
     Indication: Metastases to liver
     Dosage: 65 MG/M^2 EVERY 2-WK
  16. PREDNISOLONE [Concomitant]
     Active Substance: PREDNISOLONE
     Indication: Seronegative arthritis
  17. PREDNISOLONE [Concomitant]
     Active Substance: PREDNISOLONE
     Indication: Gout
     Dates: start: 2021
  18. NAPROXEN [Concomitant]
     Active Substance: NAPROXEN
     Indication: Seronegative arthritis
  19. NAPROXEN [Concomitant]
     Active Substance: NAPROXEN
     Indication: Arthritis

REACTIONS (2)
  - Peripheral sensory neuropathy [Recovered/Resolved]
  - Off label use [Unknown]
